FAERS Safety Report 6757074-2 (Version None)
Quarter: 2010Q2

REPORT INFORMATION
  Report Type: 
  Country: None (occurrence: None)
  Receive Date: 20100604
  Receipt Date: 20100524
  Transmission Date: 20101027
  Serious: Yes (Other)
  Sender: FDA-Public Use
  Company Number: US-ELI_LILLY_AND_COMPANY-US201003000192

PATIENT
  Sex: Female
  Weight: 63.719 kg

DRUGS (14)
  1. FORTEO [Suspect]
     Indication: OSTEOPOROSIS
     Dosage: 20 UG, DAILY (1/D)
     Dates: start: 20090201
  2. ASPIRIN [Concomitant]
     Dosage: 81 MG, UNK
  3. ASPIRIN [Concomitant]
     Dosage: 325 MG, UNK
  4. ADVAIR DISKUS 100/50 [Concomitant]
  5. SPIRIVA [Concomitant]
  6. VITAMIN D [Concomitant]
  7. LEXAPRO [Concomitant]
     Indication: DEPRESSION
     Dosage: 10 MG, UNK
  8. DIOVAN [Concomitant]
     Dosage: 150 MG, UNK
  9. OMEPRAZOLE [Concomitant]
     Indication: GASTROOESOPHAGEAL REFLUX DISEASE
  10. HYDROCHLORZIDE [Concomitant]
     Dosage: UNK, UNK
  11. SIMVASTATIN [Concomitant]
     Indication: BLOOD CHOLESTEROL
  12. PROPOXYPHENE [Concomitant]
     Indication: BACK PAIN
  13. METHOCARBAMOL [Concomitant]
     Dosage: 750 MG, UNK
  14. PREDNISONE [Concomitant]
     Indication: CHRONIC OBSTRUCTIVE PULMONARY DISEASE

REACTIONS (14)
  - BALANCE DISORDER [None]
  - BONE DISORDER [None]
  - DRUG DOSE OMISSION [None]
  - DRY MOUTH [None]
  - DYSPHAGIA [None]
  - DYSPHONIA [None]
  - HEADACHE [None]
  - INJECTION SITE PAIN [None]
  - LACUNAR INFARCTION [None]
  - MEMORY IMPAIRMENT [None]
  - MUSCLE SPASMS [None]
  - SURGERY [None]
  - URTICARIA [None]
  - VITAMIN D DECREASED [None]
